FAERS Safety Report 10450025 (Version 1)
Quarter: 2014Q3

REPORT INFORMATION
  Report Type: Report from Study
  Country: BR (occurrence: BR)
  Receive Date: 20140912
  Receipt Date: 20140912
  Transmission Date: 20150326
  Serious: Yes (Hospitalization, Disabling, Other)
  Sender: FDA-Public Use
  Company Number: BR-ABBVIE-14K-020-1279940-00

PATIENT
  Age: 63 Year
  Sex: Female
  Weight: 99 kg

DRUGS (4)
  1. ARAVA [Concomitant]
     Active Substance: LEFLUNOMIDE
     Indication: RHEUMATOID ARTHRITIS
     Route: 048
     Dates: start: 2009
  2. HYDROCHLOROTHIAZIDE. [Concomitant]
     Active Substance: HYDROCHLOROTHIAZIDE
     Indication: HYPERTENSION
     Route: 048
     Dates: start: 2006
  3. ENALAPRIL [Concomitant]
     Active Substance: ENALAPRIL
     Indication: HYPERTENSION
     Dosage: HALF TABLET IN THE MORNING AND HALF TABLET AT NIGHT
     Route: 048
     Dates: start: 2006
  4. HUMIRA [Suspect]
     Active Substance: ADALIMUMAB
     Indication: RHEUMATOID ARTHRITIS
     Route: 058
     Dates: start: 2012, end: 201406

REACTIONS (13)
  - Immunodeficiency [Unknown]
  - Joint abscess [Recovered/Resolved]
  - Gait disturbance [Unknown]
  - Rheumatoid nodule [Recovered/Resolved]
  - Musculoskeletal pain [Unknown]
  - Impaired healing [Recovered/Resolved]
  - Pain in extremity [Unknown]
  - Device breakage [Not Recovered/Not Resolved]
  - Rheumatoid arthritis [Unknown]
  - Arthritis infective [Recovered/Resolved]
  - Inflammation [Unknown]
  - Impaired healing [Not Recovered/Not Resolved]
  - Rheumatoid arthritis [Not Recovered/Not Resolved]

NARRATIVE: CASE EVENT DATE: 201312
